FAERS Safety Report 4502024-2 (Version None)
Quarter: 2004Q4

REPORT INFORMATION
  Report Type: 
  Country: None (occurrence: None)
  Receive Date: 20041115
  Receipt Date: 20041029
  Transmission Date: 20050328
  Serious: No
  Sender: FDA-Public Use
  Company Number: 2004AC00680

PATIENT
  Age: 67 Year
  Sex: Male

DRUGS (3)
  1. CRESTOR [Suspect]
     Indication: ANGINA PECTORIS
     Dates: start: 20041011, end: 20041023
  2. CRESTOR [Suspect]
     Indication: LOW DENSITY LIPOPROTEIN INCREASED
     Dates: start: 20041011, end: 20041023
  3. ASPIRIN [Concomitant]

REACTIONS (1)
  - BRADYCARDIA [None]
